FAERS Safety Report 18832956 (Version 1)
Quarter: 2021Q1

REPORT INFORMATION
  Report Type: Spontaneous
  Country: US (occurrence: US)
  Receive Date: 20210202
  Receipt Date: 20210202
  Transmission Date: 20210419
  Serious: Yes (Hospitalization)
  Sender: FDA-Public Use
  Company Number: None

PATIENT
  Age: 67 Year
  Sex: Male
  Weight: 64 kg

DRUGS (4)
  1. KEPPRA [Concomitant]
     Active Substance: LEVETIRACETAM
     Dates: start: 20201015, end: 20201201
  2. FILGRASTIM?SNDZ (ZARXIO) 480 MCG SYRG [Concomitant]
     Dates: start: 20201016, end: 20201106
  3. TECARTUS [Suspect]
     Active Substance: BREXUCABTAGENE AUTOLEUCEL
     Indication: MANTLE CELL LYMPHOMA
     Dosage: ?          OTHER FREQUENCY:ONCE;?
     Route: 042
     Dates: start: 20201015, end: 20201015
  4. ACYLOVIR [Concomitant]
     Dates: start: 20201015, end: 20210202

REACTIONS (4)
  - Immune effector cell-associated neurotoxicity syndrome [None]
  - Orthostatic hypotension [None]
  - Cytokine release syndrome [None]
  - Physical deconditioning [None]

NARRATIVE: CASE EVENT DATE: 20201015
